FAERS Safety Report 5810288-8 (Version None)
Quarter: 2008Q3

REPORT INFORMATION
  Report Type: 
  Country: None (occurrence: None)
  Receive Date: 20080715
  Receipt Date: 20080218
  Transmission Date: 20090109
  Serious: No
  Sender: FDA-Public Use
  Company Number: A0711117A

PATIENT
  Sex: Male

DRUGS (1)
  1. IMITREX [Suspect]
     Indication: MIGRAINE
     Dosage: 100MG AS REQUIRED
     Route: 048
     Dates: start: 20080218

REACTIONS (1)
  - DRUG INEFFECTIVE [None]
